FAERS Safety Report 18580111 (Version 1)
Quarter: 2020Q4

REPORT INFORMATION
  Report Type: Report from Study
  Country: CA (occurrence: CA)
  Receive Date: 20201204
  Receipt Date: 20201204
  Transmission Date: 20210114
  Serious: Yes (Death, Other)
  Sender: FDA-Public Use
  Company Number: CA-GLAXOSMITHKLINE-CA2020GSK197718

PATIENT
  Age: 91 Year
  Sex: Female
  Weight: 72.5 kg

DRUGS (2)
  1. BELIMUMAB [Suspect]
     Active Substance: BELIMUMAB
     Indication: SYSTEMIC LUPUS ERYTHEMATOSUS
     Dosage: 10 MG/KG,CYC, ONCE IN A MONTH
     Route: 058
     Dates: start: 20120525, end: 20170317
  2. CREON [Concomitant]
     Active Substance: PANCRELIPASE AMYLASE\PANCRELIPASE LIPASE\PANCRELIPASE PROTEASE
     Indication: ADENOCARCINOMA PANCREAS
     Dosage: 2 DF, TID (25000 UI)
     Route: 048
     Dates: start: 201909, end: 2020

REACTIONS (2)
  - Adenocarcinoma pancreas [Unknown]
  - Death [Fatal]

NARRATIVE: CASE EVENT DATE: 20190912
